FAERS Safety Report 4953925-2 (Version None)
Quarter: 2006Q1

REPORT INFORMATION
  Report Type: 
  Country: None (occurrence: None)
  Receive Date: 20060327
  Receipt Date: 20060316
  Transmission Date: 20060701
  Serious: Yes (Hospitalization)
  Sender: FDA-Public Use
  Company Number: US-BRISTOL-MYERS SQUIBB COMPANY-13316872

PATIENT
  Age: 76 Year
  Sex: Male
  Weight: 88 kg

DRUGS (8)
  1. WARFARIN SODIUM [Suspect]
     Indication: CORONARY ARTERIAL STENT INSERTION
     Dosage: 5 MG ONE TABLET EVERY OTHER DAY ALTERNATING WITH 1.25 MG (1/2 OF A 2.5 MG TABLET)
     Dates: start: 20060112, end: 20060301
  2. PLAVIX [Suspect]
     Indication: CORONARY ARTERIAL STENT INSERTION
     Dates: end: 20060301
  3. ASPIRIN [Concomitant]
     Dosage: DURATION: ^MANY YEARS^
  4. CLONIDINE [Concomitant]
     Dosage: DURATION: 5 YEARS
  5. ACCUPRIL [Concomitant]
     Dosage: DURATION: 3 YEARS
  6. DIGITEK [Concomitant]
     Dates: start: 20060112
  7. LOZOL [Concomitant]
     Dates: start: 20060112, end: 20060224
  8. METOPROLOL [Concomitant]
     Dosage: DURATION: 3 YEARS

REACTIONS (3)
  - ANAEMIA [None]
  - MYOCARDIAL INFARCTION [None]
  - OEDEMA PERIPHERAL [None]
